FAERS Safety Report 5715937-0 (Version None)
Quarter: 2008Q2

REPORT INFORMATION
  Report Type: 
  Country: None (occurrence: None)
  Receive Date: 20080424
  Receipt Date: 20080418
  Transmission Date: 20081010
  Serious: Yes (Other)
  Sender: FDA-Public Use
  Company Number: JP-ASTRAZENECA-2008AP02898

PATIENT
  Age: 80 Year
  Sex: Male

DRUGS (3)
  1. CRESTOR [Suspect]
     Indication: HYPERCHOLESTEROLAEMIA
     Route: 048
     Dates: start: 20080108, end: 20080407
  2. URINORM [Suspect]
     Dosage: FREQUENCY UNKNOWN
     Route: 048
  3. KREMEZIN [Suspect]
     Dosage: DOSE UNKNOWN
     Route: 048

REACTIONS (1)
  - PLATELET COUNT DECREASED [None]
